FAERS Safety Report 9202291 (Version 1)
Quarter: 2013Q1

REPORT INFORMATION
  Report Type: Spontaneous
  Country: US (occurrence: None)
  Receive Date: 20130329
  Receipt Date: 20130329
  Transmission Date: 20140127
  Serious: No
  Sender: FDA-Public Use
  Company Number: None

PATIENT
  Age: 20 Year
  Sex: Male
  Weight: 63 kg

DRUGS (4)
  1. DAPSONE [Suspect]
     Route: 048
     Dates: start: 20121019, end: 20121129
  2. CYCLOSPORINE [Concomitant]
  3. MARINOL [Concomitant]
  4. PROTONIX [Concomitant]

REACTIONS (1)
  - Cough [None]
